FAERS Safety Report 4303587-2 (Version None)
Quarter: 2004Q1

REPORT INFORMATION
  Report Type: 
  Country: None (occurrence: None)
  Receive Date: 20040225
  Receipt Date: 20040225
  Transmission Date: 20041129
  Serious: Yes (Hospitalization)
  Sender: FDA-Public Use
  Company Number: None

PATIENT
  Age: 42 Year
  Sex: Male
  Weight: 113.3993 kg

DRUGS (14)
  1. ZELNORM [Suspect]
     Indication: ABDOMINAL PAIN
     Dosage: 6 MG BID PRN ORAL
     Route: 048
     Dates: start: 20040202, end: 20040213
  2. ZELNORM [Suspect]
     Indication: CROHN'S DISEASE
     Dosage: 6 MG BID PRN ORAL
     Route: 048
     Dates: start: 20040202, end: 20040213
  3. PREDNISONE [Concomitant]
  4. IMURAN [Concomitant]
  5. KADIAN [Concomitant]
  6. COREG [Concomitant]
  7. DIOVAN [Concomitant]
  8. LASIX [Concomitant]
  9. KCL TAB [Concomitant]
  10. COUMADIN [Concomitant]
  11. ACIPHEX [Concomitant]
  12. FAMOTIDINE [Concomitant]
  13. REGLAN [Concomitant]
  14. HUMULIN R [Concomitant]

REACTIONS (1)
  - PAINFUL ERECTION [None]
